FAERS Safety Report 15584990 (Version 1)
Quarter: 2018Q4

REPORT INFORMATION
  Report Type: Spontaneous
  Country: FI (occurrence: FI)
  Receive Date: 20181102
  Receipt Date: 20181102
  Transmission Date: 20190205
  Serious: Yes (Other)
  Sender: FDA-Public Use
  Company Number: FI-ALLERGAN-1851971US

PATIENT
  Sex: Male

DRUGS (4)
  1. LEPONEX [Suspect]
     Active Substance: CLOZAPINE
     Indication: PRODUCT USED FOR UNKNOWN INDICATION
     Dosage: UNK
     Route: 065
     Dates: start: 201810
  2. ESCITALOPRAM OXALATE - BP [Suspect]
     Active Substance: ESCITALOPRAM OXALATE
     Indication: PRODUCT USED FOR UNKNOWN INDICATION
     Dosage: 10 MG, QD
     Route: 065
     Dates: start: 201810
  3. LEPONEX [Suspect]
     Active Substance: CLOZAPINE
     Dosage: 450 MG, QD
     Route: 065
     Dates: end: 201810
  4. ESCITALOPRAM OXALATE - BP [Suspect]
     Active Substance: ESCITALOPRAM OXALATE
     Dosage: 30 MG, QD (OVERDOSE)
     Route: 065
     Dates: end: 201810

REACTIONS (7)
  - Hyperparathyroidism [Unknown]
  - Antipsychotic drug level increased [Unknown]
  - Blood pressure increased [Unknown]
  - Hypokalaemia [Unknown]
  - Electrocardiogram QT prolonged [Recovering/Resolving]
  - Parathyroid tumour benign [Unknown]
  - Overdose [Unknown]

NARRATIVE: CASE EVENT DATE: 2018
